FAERS Safety Report 16462682 (Version 5)
Quarter: 2020Q4

REPORT INFORMATION
  Report Type: Other
  Country: CA (occurrence: CA)
  Receive Date: 20190621
  Receipt Date: 20201022
  Transmission Date: 20210113
  Serious: Yes (Life-Threatening, Hospitalization, Other)
  Sender: FDA-Public Use
  Company Number: CA-APOTEX-2019AP016663

PATIENT
  Age: 66 Year
  Sex: Male

DRUGS (2)
  1. ACETYLSALICYLIC ACID [Suspect]
     Active Substance: ASPIRIN
     Indication: ANTIPLATELET THERAPY
     Dosage: UNK
     Route: 065
  2. CLOPIDOGREL [Suspect]
     Active Substance: CLOPIDOGREL BISULFATE
     Indication: ANTIPLATELET THERAPY
     Dosage: UNK
     Route: 065

REACTIONS (6)
  - Cardiotoxicity [Not Recovered/Not Resolved]
  - Haemorrhagic infarction [Not Recovered/Not Resolved]
  - Disease recurrence [Not Recovered/Not Resolved]
  - Chest pain [Unknown]
  - Drug ineffective [Not Recovered/Not Resolved]
  - Acute myocardial infarction [Not Recovered/Not Resolved]
